FAERS Safety Report 24539376 (Version 2)
Quarter: 2024Q4

REPORT INFORMATION
  Report Type: Report from Study
  Country: US (occurrence: US)
  Receive Date: 20241023
  Receipt Date: 20241024
  Transmission Date: 20250115
  Serious: No
  Sender: ROCHE
  Company Number: US-ROCHE-10000109041

PATIENT
  Age: 87 Year
  Sex: Male
  Weight: 74.6 kg

DRUGS (4)
  1. CELLCEPT [Suspect]
     Active Substance: MYCOPHENOLATE MOFETIL
     Indication: Pemphigoid
     Dosage: 200MG/ML
     Route: 048
     Dates: end: 20240705
  2. CELLCEPT [Suspect]
     Active Substance: MYCOPHENOLATE MOFETIL
     Dosage: 200MG/ML
     Route: 048
  3. PREDNISONE [Concomitant]
     Active Substance: PREDNISONE
     Dates: start: 20240523, end: 20240620
  4. OMEPRAZOLE [Concomitant]
     Active Substance: OMEPRAZOLE
     Dates: start: 20240523, end: 20240605

REACTIONS (2)
  - Off label use [Unknown]
  - No adverse event [Unknown]
